FAERS Safety Report 4476742-9 (Version None)
Quarter: 2004Q4

REPORT INFORMATION
  Report Type: 
  Country: None (occurrence: None)
  Receive Date: 20041015
  Receipt Date: 20041015
  Transmission Date: 20050328
  Serious: Yes (Other)
  Sender: FDA-Public Use
  Company Number: None

PATIENT
  Age: 27 Year
  Sex: Male
  Weight: 68.2 kg

DRUGS (2)
  1. CEFEPIME [Suspect]
     Indication: PSEUDOMONAS INFECTION
     Dosage: 2 GM   Q12H   INTRAVENOU
     Route: 042
     Dates: start: 20041013, end: 20041013
  2. TOBRAMYCIN [Suspect]
     Indication: PSEUDOMONAS INFECTION
     Dosage: 600   QDAY   INTRAVENOU
     Route: 042
     Dates: start: 20041013, end: 20041013

REACTIONS (2)
  - PRURITUS [None]
  - RASH [None]
